FAERS Safety Report 4944184-5 (Version None)
Quarter: 2006Q1

REPORT INFORMATION
  Report Type: 
  Country: None (occurrence: None)
  Receive Date: 20060310
  Receipt Date: 20060228
  Transmission Date: 20060701
  Serious: Yes (Hospitalization)
  Sender: FDA-Public Use
  Company Number: 2006BH004210

PATIENT
  Age: 55 Year
  Sex: Female
  Weight: 68.0396 kg

DRUGS (1)
  1. CEFTRIAXONE [Suspect]
     Indication: LYME DISEASE
     Dosage: 2 GM; IV
     Route: 042
     Dates: end: 20060228

REACTIONS (6)
  - CHILLS [None]
  - DRUG HYPERSENSITIVITY [None]
  - HEART RATE INCREASED [None]
  - HYPERTENSION [None]
  - HYPERVENTILATION [None]
  - PYREXIA [None]
